FAERS Safety Report 21350064 (Version 1)
Quarter: 2022Q3

REPORT INFORMATION
  Report Type: Spontaneous
  Country: US (occurrence: None)
  Receive Date: 20220917
  Receipt Date: 20220917
  Transmission Date: 20221027
  Serious: Yes (Hospitalization, Disabling)
  Sender: FDA-Public Use
  Company Number: None

PATIENT
  Age: 48 Year
  Sex: Female
  Weight: 69.75 kg

DRUGS (2)
  1. LEVETIRACETAM [Suspect]
     Active Substance: LEVETIRACETAM
     Indication: Epilepsy
     Dosage: OTHER QUANTITY : 2 TABLET(S);?FREQUENCY : TWICE A DAY;?
     Route: 048
     Dates: start: 20220622, end: 20220914
  2. DILANTIN [Concomitant]
     Active Substance: PHENYTOIN

REACTIONS (5)
  - Rash [None]
  - Skin discolouration [None]
  - Skin ulcer [None]
  - Rash [None]
  - Pain [None]

NARRATIVE: CASE EVENT DATE: 20220707
